FAERS Safety Report 6264145-6 (Version None)
Quarter: 2009Q3

REPORT INFORMATION
  Report Type: 
  Country: None (occurrence: None)
  Receive Date: 20090710
  Receipt Date: 20080605
  Transmission Date: 20100115
  Serious: Yes (Other)
  Sender: FDA-Public Use
  Company Number: ZA-PFIZER INC-2008048700

PATIENT
  Age: 37 Year

DRUGS (2)
  1. LYRICA [Suspect]
     Indication: TRIGEMINAL NEURALGIA
     Route: 048
     Dates: start: 20080501
  2. TOPAMAX [Suspect]
     Route: 048
     Dates: start: 20080501

REACTIONS (3)
  - CONFUSIONAL STATE [None]
  - MOTOR DYSFUNCTION [None]
  - SOMNOLENCE [None]
